FAERS Safety Report 14865527 (Version 2)
Quarter: 2018Q2

REPORT INFORMATION
  Report Type: Report from Study
  Country: GB (occurrence: GB)
  Receive Date: 20180508
  Receipt Date: 20180628
  Transmission Date: 20180711
  Serious: Yes (Other)
  Sender: FDA-Public Use
  Company Number: GB-BEH-2018090073

PATIENT
  Weight: 3.5 kg

DRUGS (3)
  1. RIASTAP [Suspect]
     Active Substance: FIBRINOGEN HUMAN
     Indication: CARDIOPULMONARY BYPASS
  2. RIASTAP [Suspect]
     Active Substance: FIBRINOGEN HUMAN
     Indication: HAEMORRHAGE PROPHYLAXIS
     Dosage: UNK
     Route: 065
     Dates: start: 20150722
  3. RIASTAP [Suspect]
     Active Substance: FIBRINOGEN HUMAN
     Indication: ATRIOVENTRICULAR SEPTAL DEFECT

REACTIONS (8)
  - Peripheral swelling [Unknown]
  - Lactic acidosis [Recovered/Resolved]
  - Splenic infarction [Unknown]
  - Hypotension [Recovered/Resolved]
  - Pericardial effusion [Recovered/Resolved]
  - Pleural effusion [Recovered/Resolved]
  - Skin discolouration [Unknown]
  - Pelvic venous thrombosis [Unknown]

NARRATIVE: CASE EVENT DATE: 20150722
